FAERS Safety Report 6725412-2 (Version None)
Quarter: 2010Q2

REPORT INFORMATION
  Report Type: 
  Country: None (occurrence: None)
  Receive Date: 20100514
  Receipt Date: 20100502
  Transmission Date: 20101027
  Serious: Yes (Hospitalization, Other)
  Sender: FDA-Public Use
  Company Number: US-ELI_LILLY_AND_COMPANY-US201005001021

PATIENT
  Sex: Female

DRUGS (1)
  1. EVISTA [Suspect]

REACTIONS (5)
  - DEMENTIA [None]
  - HIP FRACTURE [None]
  - LUNG DISORDER [None]
  - MOBILITY DECREASED [None]
  - THROMBOSIS [None]
